FAERS Safety Report 18502256 (Version 2)
Quarter: 2021Q1

REPORT INFORMATION
  Report Type: Report from Study
  Country: US (occurrence: US)
  Receive Date: 20201113
  Receipt Date: 20210318
  Transmission Date: 20210419
  Serious: Yes (Other)
  Sender: FDA-Public Use
  Company Number: US-JNJFOC-A-NJ2019-196107

PATIENT
  Age: 61 Year
  Sex: Female
  Weight: 42.18 kg

DRUGS (6)
  1. OPSUMIT [Suspect]
     Active Substance: MACITENTAN
     Indication: PULMONARY ARTERIAL HYPERTENSION
     Dosage: 10 MG, QD
     Route: 048
     Dates: start: 20190723
  2. OPSUMIT [Suspect]
     Active Substance: MACITENTAN
     Route: 048
  3. ELIQUIS [Concomitant]
     Active Substance: APIXABAN
  4. MIRCERA [Concomitant]
     Active Substance: METHOXY POLYETHYLENE GLYCOL-EPOETIN BETA
  5. NIFEDIPINE. [Concomitant]
     Active Substance: NIFEDIPINE
     Dosage: UNK
     Dates: start: 20190129
  6. ADEMPAS [Concomitant]
     Active Substance: RIOCIGUAT
     Dosage: 2 MG, TID
     Route: 048
     Dates: start: 201907

REACTIONS (12)
  - Liver disorder [Unknown]
  - Serum ferritin increased [Unknown]
  - Pancreatic disorder [Unknown]
  - Vomiting [Recovered/Resolved]
  - Hepatic enzyme increased [Unknown]
  - Conjunctival discolouration [Not Recovered/Not Resolved]
  - Therapy non-responder [Unknown]
  - Blood count abnormal [Unknown]
  - Abdominal pain upper [Recovered/Resolved]
  - Nausea [Recovered/Resolved]
  - Dialysis [Unknown]
  - Haemoglobin decreased [Unknown]

NARRATIVE: CASE EVENT DATE: 2019
